FAERS Safety Report 8936256 (Version 1)
Quarter: 2012Q4

REPORT INFORMATION
  Report Type: 
  Country: US (occurrence: US)
  Receive Date: 20121130
  Receipt Date: 20121130
  Transmission Date: 20130627
  Serious: No
  Sender: FDA-Public Use
  Company Number: US-ABBOTT-12P-163-0974437-00

PATIENT
  Sex: Male
  Weight: 88.53 kg

DRUGS (4)
  1. ANDROGEL 1.62% [Suspect]
     Indication: BLOOD TESTOSTERONE DECREASED
     Dosage: 1 in 1 day, 3 pump actuations per day
     Dates: start: 201207, end: 201208
  2. ANDROGEL 1.62% [Suspect]
     Dosage: 2 pump actuations per day
     Dates: start: 201205, end: 201207
  3. MUSCLE RELAXER [Concomitant]
     Indication: INTERVERTEBRAL DISC DEGENERATION
  4. ANTI-INFLAMMATORY [Concomitant]
     Indication: INTERVERTEBRAL DISC DEGENERATION

REACTIONS (2)
  - Incorrect storage of drug [Unknown]
  - Blood testosterone decreased [Not Recovered/Not Resolved]
